FAERS Safety Report 9321283 (Version 2)
Quarter: 2013Q2

REPORT INFORMATION
  Report Type: Report from Study
  Country: TR (occurrence: None)
  Receive Date: 20130528
  Receipt Date: 20130528
  Transmission Date: 20140414
  Serious: Yes (Death, Hospitalization)
  Sender: FDA-Public Use
  Company Number: 2012AP003810

PATIENT
  Age: 20 Year
  Sex: Male
  Weight: 39.5 kg

DRUGS (2)
  1. FERRIPROX [Suspect]
     Indication: CONGENITAL APLASTIC ANAEMIA
     Route: 048
     Dates: start: 20110419, end: 20120710
  2. LEVOTHYROXINE [Concomitant]

REACTIONS (10)
  - Agranulocytosis [None]
  - Acute respiratory distress syndrome [None]
  - Depressed level of consciousness [None]
  - Blood pH decreased [None]
  - Asthenia [None]
  - Oral disorder [None]
  - Febrile neutropenia [None]
  - Cerebral haemorrhage [None]
  - Cardiac arrest [None]
  - Sepsis [None]
